FAERS Safety Report 6727553-2 (Version None)
Quarter: 2010Q2

REPORT INFORMATION
  Report Type: 
  Country: None (occurrence: None)
  Receive Date: 20100517
  Receipt Date: 20100505
  Transmission Date: 20101027
  Serious: Yes (Other)
  Sender: FDA-Public Use
  Company Number: PHHY2008IT18646

PATIENT
  Sex: Male

DRUGS (4)
  1. ZOMETA [Suspect]
     Indication: PROSTATE CANCER
     Dosage: 4 MG UPON NEEDED
     Dates: start: 20031223, end: 20071126
  2. MITOXANTRONE [Concomitant]
     Route: 042
  3. CASODEX [Concomitant]
     Route: 048
  4. LUTEINIZING HORMONE-RELEASING HORMONE [Concomitant]

REACTIONS (4)
  - OSTEITIS [None]
  - OSTEONECROSIS OF JAW [None]
  - SURGERY [None]
  - TOOTH EXTRACTION [None]
